FAERS Safety Report 14271751 (Version 1)
Quarter: 2017Q4

REPORT INFORMATION
  Report Type: Spontaneous
  Country: US (occurrence: US)
  Receive Date: 20171211
  Receipt Date: 20171211
  Transmission Date: 20180321
  Serious: Yes (Hospitalization, Other)
  Sender: FDA-Public Use
  Company Number: US-OTSUKA-2016_015855

PATIENT
  Age: 37 Year
  Sex: Male
  Weight: 108.8 kg

DRUGS (272)
  1. BUPROPION HCL [Concomitant]
     Active Substance: BUPROPION HYDROCHLORIDE
     Indication: PRODUCT USED FOR UNKNOWN INDICATION
     Dosage: 1 TAB, BID(BUPROPION HCL 100MG 12HR SA TAB, TAKE DNP TART.PT BY MOUTH EVERY MORN FOR MOOD OR SMOKING
     Route: 048
     Dates: start: 20160126, end: 20170126
  2. BUPROPION HCL [Concomitant]
     Active Substance: BUPROPION HYDROCHLORIDE
     Indication: PRODUCT USED FOR UNKNOWN INDICATION
     Dosage: 1 TAB, BID(BUPROPION HCL 100MG 12HR SA TAB, TAKE DNP TART.PT BY MOUTH EVERY MORN FOR MOOD OR SMOKING
     Route: 048
     Dates: start: 20150925, end: 20160925
  3. LORATADINE. [Concomitant]
     Active Substance: LORATADINE
     Indication: PRODUCT USED FOR UNKNOWN INDICATION
     Dosage: 1 DF, QD
     Route: 048
     Dates: start: 20160223
  4. LORATADINE. [Concomitant]
     Active Substance: LORATADINE
     Indication: PRODUCT USED FOR UNKNOWN INDICATION
     Dosage: 1 DF, QD
     Route: 048
     Dates: start: 20160205
  5. OMEPRAZOLE. [Concomitant]
     Active Substance: OMEPRAZOLE
     Indication: PRODUCT USED FOR UNKNOWN INDICATION
     Dosage: 20 MG,UNK(1DF=TWO CAPSULES BY MOUTH DAILY 1 HR PRIOR TO FIRST MEAL OF THE DAY FOR STOMACH,1DF=1 CAP)
     Route: 065
     Dates: end: 20161023
  6. OMEPRAZOLE. [Concomitant]
     Active Substance: OMEPRAZOLE
     Indication: PRODUCT USED FOR UNKNOWN INDICATION
     Dosage: UNK(1DF=TWO CAPSULES BY MOUTH DAILY 1 HR PRIOR TO FIRST MEAL OF THE DAY FOR STOMACH,1DF=1 CAP)
     Route: 065
     Dates: end: 20160107
  7. OMEPRAZOLE. [Concomitant]
     Active Substance: OMEPRAZOLE
     Indication: PRODUCT USED FOR UNKNOWN INDICATION
     Dosage: 40 MG, (1DF=TWO CAPSULES BY MOUTH DAILY 1 HR PRIOR TO FIRST MEAL OF THE DAY FOR STOMACH,1DF=1 CAP
     Route: 048
     Dates: start: 20160107, end: 20160107
  8. OMEPRAZOLE. [Concomitant]
     Active Substance: OMEPRAZOLE
     Indication: PRODUCT USED FOR UNKNOWN INDICATION
     Dosage: 1 DF, QD(1DF=TWO CAPSULES BY MOUTH DAILY 1 HR PRIOR TO FIRST MEAL OF THE DAY FOR STOMACH,1DF=1 CAP
     Route: 048
     Dates: start: 20140304, end: 20150305
  9. OMEPRAZOLE. [Concomitant]
     Active Substance: OMEPRAZOLE
     Indication: PRODUCT USED FOR UNKNOWN INDICATION
     Dosage: 20 MG, QD(1DF=TWO CAPSULES BY MOUTH DAILY 1 HR PRIOR TO FIRST MEAL OF THE DAY FOR STOMACH,1DF=1 CAP
     Route: 048
     Dates: start: 20141111
  10. OMEPRAZOLE. [Concomitant]
     Active Substance: OMEPRAZOLE
     Indication: PRODUCT USED FOR UNKNOWN INDICATION
     Dosage: 1 DF, QD(1DF=TWO CAPSULES BY MOUTH DAILY 1 HR PRIOR TO FIRST MEAL OF THE DAY FOR STOMACH,1DF=1 CAP
     Route: 048
     Dates: start: 20070226, end: 20080227
  11. SIMVASTATIN. [Concomitant]
     Active Substance: SIMVASTATIN
     Indication: PRODUCT USED FOR UNKNOWN INDICATION
     Dosage: UNK (1DF=ONE-HALF TABLET)
     Route: 065
     Dates: end: 20160126
  12. HYDROXYZINE PAMOATE. [Concomitant]
     Active Substance: HYDROXYZINE PAMOATE
     Indication: PRODUCT USED FOR UNKNOWN INDICATION
     Dosage: 1 DF, BID (1 DF=01 CAP)
     Route: 048
     Dates: start: 20070918, end: 20080918
  13. BUSPIRONE HCL [Concomitant]
     Active Substance: BUSPIRONE HYDROCHLORIDE
     Indication: PRODUCT USED FOR UNKNOWN INDICATION
     Dosage: 1 TAB, TID (DAYS SUPPLY: 30, QUANTITY: 30, DAYS SUPPLY: 30, QUANTITY: 90)
     Route: 048
     Dates: start: 20160803
  14. BUSPIRONE HCL [Concomitant]
     Active Substance: BUSPIRONE HYDROCHLORIDE
     Indication: PRODUCT USED FOR UNKNOWN INDICATION
     Dosage: 1 TAB, TID (DAYS SUPPLY: 30, QUANTITY: 30, DAYS SUPPLY: 30, QUANTITY: 90)
     Route: 048
     Dates: start: 20130129, end: 20140130
  15. SILDENAFIL CITRATE. [Concomitant]
     Active Substance: SILDENAFIL CITRATE
     Indication: PRODUCT USED FOR UNKNOWN INDICATION
     Dosage: 1 DF, PRN (1DF= ONE-HALF TABLET)
     Route: 048
     Dates: start: 20160212
  16. ONDANSETRON [Concomitant]
     Active Substance: ONDANSETRON
     Indication: NAUSEA
     Dosage: UNK
     Route: 065
     Dates: end: 20160324
  17. CIPROFLOXACIN HCL [Concomitant]
     Active Substance: CIPROFLOXACIN HYDROCHLORIDE
     Indication: INFECTION
     Dosage: UNK
     Route: 065
     Dates: end: 20141212
  18. METHYLPREDNISOLONE. [Concomitant]
     Active Substance: METHYLPREDNISOLONE
     Indication: PRODUCT USED FOR UNKNOWN INDICATION
     Dosage: 1 DF, PRN (DOSEPAK,21 1DF=TABLETS)
     Route: 048
     Dates: start: 20130911, end: 20131011
  19. LITHIUM CARBONATE. [Concomitant]
     Active Substance: LITHIUM CARBONATE
     Indication: MENTAL DISORDER
     Dosage: 450 MG, 1 DF: DAYS SUPPLY: 30, QUANTITY: 30, DAYS SUPPLY: 30, QUANTITY: 60
     Route: 065
     Dates: end: 20121227
  20. LITHIUM CARBONATE. [Concomitant]
     Active Substance: LITHIUM CARBONATE
     Indication: PRODUCT USED FOR UNKNOWN INDICATION
     Dosage: 1 TAB, QD (1 DF: DAYS SUPPLY: 30, QUANTITY: 30, DAYS SUPPLY: 30, QUANTITY: 60
     Route: 048
     Dates: start: 20090218, end: 20100219
  21. LITHIUM CARBONATE. [Concomitant]
     Active Substance: LITHIUM CARBONATE
     Indication: PRODUCT USED FOR UNKNOWN INDICATION
     Dosage: 1 TAB, QD (1 DF: DAYS SUPPLY: 30, QUANTITY: 30, DAYS SUPPLY: 30, QUANTITY: 60
     Route: 048
     Dates: start: 20080527, end: 20090528
  22. LITHIUM CARBONATE. [Concomitant]
     Active Substance: LITHIUM CARBONATE
     Indication: PRODUCT USED FOR UNKNOWN INDICATION
     Dosage: 1 TAB, QD (1 DF: DAYS SUPPLY: 30, QUANTITY: 30, DAYS SUPPLY: 30, QUANTITY: 60
     Route: 048
     Dates: start: 20080130, end: 20090130
  23. LITHIUM CARBONATE. [Concomitant]
     Active Substance: LITHIUM CARBONATE
     Dosage: UNK
     Route: 065
  24. CLINDAMYCIN. [Concomitant]
     Active Substance: CLINDAMYCIN
     Indication: PRODUCT USED FOR UNKNOWN INDICATION
     Route: 065
  25. ARIPIPRAZOLE. [Suspect]
     Active Substance: ARIPIPRAZOLE
     Indication: MENTAL DISORDER
     Dosage: 25 MG, UNK (TAKE 4 TABLETS BY MOUTH EVERY MORNING FOR 14 DAYS, THEN TAKE 3 + 1/2 TABLETS EVERY MOR)
     Route: 065
     Dates: start: 2012, end: 2016
  26. ARIPIPRAZOLE. [Suspect]
     Active Substance: ARIPIPRAZOLE
     Dosage: 10 MG, QD(TAKE 4 TABLETS BY MOUTH EVERY MORNING FOR 14 DAYS, THEN TAKE 3 + 1/2 TABLETS EVERY MOR)
     Route: 048
     Dates: start: 20141111
  27. ARIPIPRAZOLE. [Suspect]
     Active Substance: ARIPIPRAZOLE
     Dosage: 30 MG, UNK(TAKE 4 TABLETS BY MOUTH EVERY MORNING FOR 14 DAYS, THEN TAKE 3 + 1/2 TABLETS EVERY MOR)
     Route: 065
     Dates: end: 20151213
  28. ARIPIPRAZOLE. [Suspect]
     Active Substance: ARIPIPRAZOLE
     Dosage: 30 MG, UNK(TAKE 4 TABLETS BY MOUTH EVERY MORNING FOR 14 DAYS, THEN TAKE 3 + 1/2 TABLETS EVERY MOR)
     Route: 065
     Dates: end: 20140130
  29. ARIPIPRAZOLE. [Suspect]
     Active Substance: ARIPIPRAZOLE
     Dosage: 10 MG, UNK(TAKE 4 TABLETS BY MOUTH EVERY MORNING FOR 14 DAYS, THEN TAKE 3 + 1/2 TABLETS EVERY MOR)
     Route: 048
     Dates: end: 20160803
  30. ARIPIPRAZOLE. [Suspect]
     Active Substance: ARIPIPRAZOLE
     Dosage: 1 DF, UNK(TAKE 4 TABLETS BY MOUTH EVERY MORNING FOR 14 DAYS, THEN TAKE 3 + 1/2 TABLETS EVERY MOR)
     Route: 048
     Dates: start: 20160801
  31. ARIPIPRAZOLE. [Suspect]
     Active Substance: ARIPIPRAZOLE
     Dosage: 1 DF, UNK(TAKE 4 TABLETS BY MOUTH EVERY MORNING FOR 14 DAYS, THEN TAKE 3 + 1/2 TABLETS EVERY MOR)
     Route: 048
     Dates: start: 20160414
  32. ARIPIPRAZOLE. [Suspect]
     Active Substance: ARIPIPRAZOLE
     Dosage: 30 MG, QD (TAKE 4 TABLETS BY MOUTH EVERY MORNING FOR 14 DAYS, THEN TAKE 3 + 1/2 TABLETS EVERY MOR
     Route: 048
     Dates: start: 20141212, end: 20151213
  33. ROTIGOTINE [Concomitant]
     Active Substance: ROTIGOTINE
     Indication: PRODUCT USED FOR UNKNOWN INDICATION
     Dosage: UNK
     Route: 065
  34. ALIZAPRIDE [Concomitant]
     Active Substance: ALIZAPRIDE
     Indication: PRODUCT USED FOR UNKNOWN INDICATION
     Dosage: UNK
     Route: 065
  35. FAZACLO [Concomitant]
     Active Substance: CLOZAPINE
     Indication: PRODUCT USED FOR UNKNOWN INDICATION
     Dosage: UNK
     Route: 065
  36. LATUDA [Concomitant]
     Active Substance: LURASIDONE HYDROCHLORIDE
     Indication: PRODUCT USED FOR UNKNOWN INDICATION
     Dosage: UNK
     Route: 065
  37. MOTILIUM [Concomitant]
     Active Substance: DOMPERIDONE
     Indication: PRODUCT USED FOR UNKNOWN INDICATION
     Dosage: UNK
     Route: 065
  38. PARLODEL [Concomitant]
     Active Substance: BROMOCRIPTINE MESYLATE
     Indication: PRODUCT USED FOR UNKNOWN INDICATION
     Dosage: UNK
     Route: 065
  39. SEROQUEL [Concomitant]
     Active Substance: QUETIAPINE FUMARATE
     Indication: PRODUCT USED FOR UNKNOWN INDICATION
     Dosage: UNK
     Route: 065
  40. SYMBYAX [Concomitant]
     Active Substance: FLUOXETINE HYDROCHLORIDE\OLANZAPINE
     Indication: PRODUCT USED FOR UNKNOWN INDICATION
     Dosage: UNK
     Route: 065
  41. ZYPREXA [Concomitant]
     Active Substance: OLANZAPINE
     Indication: PRODUCT USED FOR UNKNOWN INDICATION
     Dosage: UNK
     Route: 065
  42. FLUOXETINE HCL [Concomitant]
     Active Substance: FLUOXETINE HYDROCHLORIDE
     Indication: PRODUCT USED FOR UNKNOWN INDICATION
     Dosage: 1 DF, BID (1DF=TWO CAPSULES, 1 DF= 3 CAP, 1 DF: DAYS SUPPLY: 30, QUANTITY: 90, 1 DF: 1 CAP)
     Route: 048
     Dates: start: 20160414
  43. FLUOXETINE HCL [Concomitant]
     Active Substance: FLUOXETINE HYDROCHLORIDE
     Indication: PRODUCT USED FOR UNKNOWN INDICATION
     Dosage: 1 DF, BID (1DF=TWO CAPSULES, 1 DF= 3 CAP, 1 DF: DAYS SUPPLY: 30, QUANTITY: 90, 1 DF: 1 CAP)
     Route: 048
     Dates: start: 20160223
  44. FLUOXETINE HCL [Concomitant]
     Active Substance: FLUOXETINE HYDROCHLORIDE
     Indication: PRODUCT USED FOR UNKNOWN INDICATION
     Dosage: 20 MG, QD (1DF=TWO CAPSULES, 1 DF= 3 CAP, 1 DF: DAYS SUPPLY: 30, QUANTITY: 90, 1 DF: 1 CAP)
     Route: 048
     Dates: start: 20160107, end: 20160107
  45. FLUOXETINE HCL [Concomitant]
     Active Substance: FLUOXETINE HYDROCHLORIDE
     Indication: PRODUCT USED FOR UNKNOWN INDICATION
     Dosage: 1 DF, QD (1DF=TWO CAPSULES, 1 DF= 3 CAP, 1 DF: DAYS SUPPLY: 30, QUANTITY: 90, 1 DF: 1 CAP)
     Route: 048
     Dates: start: 20141007, end: 20151008
  46. FLUOXETINE HCL [Concomitant]
     Active Substance: FLUOXETINE HYDROCHLORIDE
     Indication: PRODUCT USED FOR UNKNOWN INDICATION
     Dosage: 1 DF, QD (1DF=TWO CAPSULES, 1 DF= 3 CAP, 1 DF: DAYS SUPPLY: 30, QUANTITY: 90, 1 DF: 1 CAP)
     Route: 048
     Dates: start: 20120808, end: 20130809
  47. BUPROPION HCL [Concomitant]
     Active Substance: BUPROPION HYDROCHLORIDE
     Indication: PRODUCT USED FOR UNKNOWN INDICATION
     Dosage: 1 TAB, QD(BUPROPION HCL 100MG 12HR SA TAB, TAKE DNP TART.PT BY MOUTH EVERY MORN FOR MOOD OR SMOKING,
     Route: 048
     Dates: start: 20130129, end: 20140130
  48. LORATADINE. [Concomitant]
     Active Substance: LORATADINE
     Indication: PRODUCT USED FOR UNKNOWN INDICATION
     Dosage: 1 DF, QD
     Route: 048
     Dates: start: 20041006, end: 20041105
  49. MONTELUKAST [Concomitant]
     Active Substance: MONTELUKAST SODIUM
     Indication: PRODUCT USED FOR UNKNOWN INDICATION
     Dosage: 1 DF, QD
     Route: 048
     Dates: start: 20160615
  50. MONTELUKAST [Concomitant]
     Active Substance: MONTELUKAST SODIUM
     Indication: PRODUCT USED FOR UNKNOWN INDICATION
     Dosage: 10 MG, QD
     Route: 048
     Dates: start: 20160120, end: 20160126
  51. OMEPRAZOLE. [Concomitant]
     Active Substance: OMEPRAZOLE
     Indication: PRODUCT USED FOR UNKNOWN INDICATION
     Dosage: 1 DF, QD(1DF=TWO CAPSULES BY MOUTH DAILY 1 HR PRIOR TO FIRST MEAL OF THE DAY FOR STOMACH,1DF=1 CAP
     Route: 048
     Dates: start: 20160223
  52. OMEPRAZOLE. [Concomitant]
     Active Substance: OMEPRAZOLE
     Indication: PRODUCT USED FOR UNKNOWN INDICATION
     Dosage: 1 DF, QD(1DF=TWO CAPSULES BY MOUTH DAILY 1 HR PRIOR TO FIRST MEAL OF THE DAY FOR STOMACH,1DF=1 CAP
     Route: 048
     Dates: start: 20151023, end: 20161023
  53. OMEPRAZOLE. [Concomitant]
     Active Substance: OMEPRAZOLE
     Indication: PRODUCT USED FOR UNKNOWN INDICATION
     Dosage: 40 MG, QD(1DF=TWO CAPSULES BY MOUTH DAILY 1 HR PRIOR TO FIRST MEAL OF THE DAY FOR STOMACH,1DF=1 CAP
     Route: 048
     Dates: start: 20160107, end: 20170126
  54. OMEPRAZOLE. [Concomitant]
     Active Substance: OMEPRAZOLE
     Indication: PRODUCT USED FOR UNKNOWN INDICATION
     Dosage: 1 DF, QD(1DF=TWO CAPSULES BY MOUTH DAILY 1 HR PRIOR TO FIRST MEAL OF THE DAY FOR STOMACH,1DF=1 CAP
     Route: 048
     Dates: start: 20100617, end: 20100915
  55. BUSPIRONE HCL [Concomitant]
     Active Substance: BUSPIRONE HYDROCHLORIDE
     Indication: PRODUCT USED FOR UNKNOWN INDICATION
     Dosage: 5 MG, UNK(DAYS SUPPLY: 30, QUANTITY: 30, DAYS SUPPLY: 30, QUANTITY: 90)
     Route: 065
     Dates: end: 20150201
  56. BUSPIRONE HCL [Concomitant]
     Active Substance: BUSPIRONE HYDROCHLORIDE
     Indication: PRODUCT USED FOR UNKNOWN INDICATION
     Dosage: 1 TAB, TID (DAYS SUPPLY: 30, QUANTITY: 30, DAYS SUPPLY: 30, QUANTITY: 90)
     Route: 048
     Dates: start: 20140131, end: 20150201
  57. BUSPIRONE HCL [Concomitant]
     Active Substance: BUSPIRONE HYDROCHLORIDE
     Indication: PRODUCT USED FOR UNKNOWN INDICATION
     Dosage: 1 TAB, TID (DAYS SUPPLY: 30, QUANTITY: 30, DAYS SUPPLY: 30, QUANTITY: 90)
     Route: 065
     Dates: start: 20110228, end: 20120229
  58. BUSPIRONE HCL [Concomitant]
     Active Substance: BUSPIRONE HYDROCHLORIDE
     Indication: PRODUCT USED FOR UNKNOWN INDICATION
     Dosage: 1 TAB, TID (DAYS SUPPLY: 30, QUANTITY: 30, DAYS SUPPLY: 30, QUANTITY: 90)
     Route: 048
     Dates: start: 20100113, end: 20110114
  59. ONDANSETRON [Concomitant]
     Active Substance: ONDANSETRON
     Indication: PRODUCT USED FOR UNKNOWN INDICATION
     Dosage: UNK
     Route: 065
     Dates: end: 20160126
  60. ACETAMINOPHEN. [Concomitant]
     Active Substance: ACETAMINOPHEN
     Indication: PRODUCT USED FOR UNKNOWN INDICATION
     Dosage: 2 DF, BID
     Route: 048
     Dates: start: 20160223, end: 20160324
  61. DICLOFENAC NA [Concomitant]
     Active Substance: DICLOFENAC SODIUM
     Indication: PAIN
     Dosage: UNK
     Route: 065
     Dates: end: 20160221
  62. METHYLPREDNISOLONE. [Concomitant]
     Active Substance: METHYLPREDNISOLONE
     Indication: INFLAMMATION
     Dosage: UNK (DOSEPAK,21 1DF=TABLETS)
     Route: 065
     Dates: end: 20131011
  63. RISPERIDONE. [Concomitant]
     Active Substance: RISPERIDONE
     Indication: MENTAL DISORDER
     Dosage: 2 MG, UNK
     Route: 065
     Dates: end: 20121227
  64. LITHIUM CARBONATE. [Concomitant]
     Active Substance: LITHIUM CARBONATE
     Indication: PRODUCT USED FOR UNKNOWN INDICATION
     Dosage: 1 TAB, QD (1 DF: DAYS SUPPLY: 30, QUANTITY: 30, DAYS SUPPLY: 30, QUANTITY: 60
     Route: 048
     Dates: start: 20091230, end: 20101231
  65. LITHIUM CARBONATE. [Concomitant]
     Active Substance: LITHIUM CARBONATE
     Indication: PRODUCT USED FOR UNKNOWN INDICATION
     Dosage: 1 TAB, QD (1 DF: DAYS SUPPLY: 30, QUANTITY: 30, DAYS SUPPLY: 30, QUANTITY: 60
     Route: 048
     Dates: start: 20070622, end: 20080622
  66. AZITHROMYCIN ANHYDROUS. [Concomitant]
     Active Substance: AZITHROMYCIN ANHYDROUS
     Indication: PRODUCT USED FOR UNKNOWN INDICATION
     Dosage: UNK
     Route: 065
  67. ARIPIPRAZOLE. [Suspect]
     Active Substance: ARIPIPRAZOLE
     Indication: MAJOR DEPRESSION
     Dosage: 30 MG, UNK (TAKE 4 TABLETS BY MOUTH EVERY MORNING FOR 14 DAYS, THEN TAKE 3 + 1/2 TABLETS EVERY MOR)
     Route: 065
     Dates: start: 2012, end: 2016
  68. ARIPIPRAZOLE. [Suspect]
     Active Substance: ARIPIPRAZOLE
     Indication: ANXIETY
     Dosage: 45 MG, UNK (TAKE 4 TABLETS BY MOUTH EVERY MORNING FOR 14 DAYS, THEN TAKE 3 + 1/2 TABLETS EVERY MOR)
     Route: 065
     Dates: start: 2012, end: 2016
  69. ARIPIPRAZOLE. [Suspect]
     Active Substance: ARIPIPRAZOLE
     Dosage: 30 MG, QD (TAKE 4 TABLETS BY MOUTH EVERY MORNING FOR 14 DAYS, THEN TAKE 3 + 1/2 TABLETS EVERY MOR
     Route: 048
     Dates: start: 20160120, end: 20160126
  70. ARIPIPRAZOLE. [Suspect]
     Active Substance: ARIPIPRAZOLE
     Dosage: 1 DF, QD (TAKE 4 TABLETS BY MOUTH EVERY MORNING FOR 14 DAYS, THEN TAKE 3 + 1/2 TABLETS EVERY MOR)
     Route: 048
     Dates: start: 20120529, end: 20130530
  71. SAPHRIS [Concomitant]
     Active Substance: ASENAPINE MALEATE
     Indication: PRODUCT USED FOR UNKNOWN INDICATION
     Dosage: UNK
     Route: 065
  72. THORAZINE [Concomitant]
     Active Substance: CHLORPROMAZINE
     Indication: PRODUCT USED FOR UNKNOWN INDICATION
     Dosage: UNK
     Route: 065
  73. FLUOXETINE HCL [Concomitant]
     Active Substance: FLUOXETINE HYDROCHLORIDE
     Indication: DEPRESSION
     Dosage: UNK (1DF=TWO CAPSULES, 1 DF= 3 CAP, 1 DF: DAYS SUPPLY: 30, QUANTITY: 90, 1 DF: 1 CAP)
     Route: 065
     Dates: end: 20160513
  74. FLUOXETINE HCL [Concomitant]
     Active Substance: FLUOXETINE HYDROCHLORIDE
     Indication: PRODUCT USED FOR UNKNOWN INDICATION
     Dosage: UNK (1DF=TWO CAPSULES, 1 DF= 3 CAP, 1 DF: DAYS SUPPLY: 30, QUANTITY: 90, 1 DF: 1 CAP)
     Route: 048
     Dates: end: 20160107
  75. BUPROPION HCL [Concomitant]
     Active Substance: BUPROPION HYDROCHLORIDE
     Indication: PRODUCT USED FOR UNKNOWN INDICATION
     Dosage: 1 TAB, BID(BUPROPION HCL 100MG 12HR SA TAB, TAKE DNP TART.PT BY MOUTH EVERY MORN FOR MOOD OR SMOKING
     Route: 048
     Dates: start: 20160223
  76. BUPROPION HCL [Concomitant]
     Active Substance: BUPROPION HYDROCHLORIDE
     Indication: PRODUCT USED FOR UNKNOWN INDICATION
     Dosage: 1 TAB, BID(BUPROPION HCL 100MG 12HR SA TAB, TAKE DNP TART.PT BY MOUTH EVERY MORN FOR MOOD OR SMOKING
     Route: 048
     Dates: start: 20141212, end: 20151213
  77. BUPROPION HCL [Concomitant]
     Active Substance: BUPROPION HYDROCHLORIDE
     Indication: PRODUCT USED FOR UNKNOWN INDICATION
     Dosage: 1 TAB, QD(BUPROPION HCL 100MG 12HR SA TAB, TAKE DNP TART.PT BY MOUTH EVERY MORN FOR MOOD OR SMOKING,
     Route: 048
     Dates: start: 20140131, end: 20150201
  78. BUPROPION HCL [Concomitant]
     Active Substance: BUPROPION HYDROCHLORIDE
     Indication: PRODUCT USED FOR UNKNOWN INDICATION
     Dosage: 1 TAB, QD(BUPROPION HCL 100MG 12HR SA TAB, TAKE DNP TART.PT BY MOUTH EVERY MORN FOR MOOD OR SMOKING,
     Route: 048
     Dates: start: 20111031, end: 20121031
  79. LISINOPRIL. [Concomitant]
     Active Substance: LISINOPRIL
     Indication: BLOOD PRESSURE MEASUREMENT
     Dosage: 40 MG, UNK  (1DF=ONE-HALF TABLET)
     Route: 065
     Dates: end: 20160126
  80. LORATADINE. [Concomitant]
     Active Substance: LORATADINE
     Indication: PRODUCT USED FOR UNKNOWN INDICATION
     Dosage: 1 DF, QD
     Route: 048
     Dates: start: 20160615
  81. MONTELUKAST [Concomitant]
     Active Substance: MONTELUKAST SODIUM
     Indication: DYSPNOEA
     Dosage: 10 MG, UNK
     Route: 065
     Dates: end: 20160126
  82. MONTELUKAST [Concomitant]
     Active Substance: MONTELUKAST SODIUM
     Indication: PRODUCT USED FOR UNKNOWN INDICATION
     Dosage: UNK
     Route: 065
     Dates: end: 20160119
  83. MONTELUKAST [Concomitant]
     Active Substance: MONTELUKAST SODIUM
     Indication: PRODUCT USED FOR UNKNOWN INDICATION
     Dosage: 1 DF, QD
     Route: 048
     Dates: start: 20160420
  84. MONTELUKAST [Concomitant]
     Active Substance: MONTELUKAST SODIUM
     Indication: PRODUCT USED FOR UNKNOWN INDICATION
     Dosage: 1 DF, QD
     Route: 048
     Dates: start: 20160223
  85. OMEPRAZOLE. [Concomitant]
     Active Substance: OMEPRAZOLE
     Indication: PRODUCT USED FOR UNKNOWN INDICATION
     Dosage: 1 DF, QD(1DF=TWO CAPSULES BY MOUTH DAILY 1 HR PRIOR TO FIRST MEAL OF THE DAY FOR STOMACH,1DF=1 CAP
     Route: 048
     Dates: start: 20160126, end: 20170126
  86. OMEPRAZOLE. [Concomitant]
     Active Substance: OMEPRAZOLE
     Indication: PRODUCT USED FOR UNKNOWN INDICATION
     Dosage: 1 DF, QD (1DF=TWO CAPSULES BY MOUTH DAILY 1 HR PRIOR TO FIRST MEAL OF THE DAY FOR STOMACH,1DF=1 CAP
     Route: 048
     Dates: start: 20150526, end: 20160526
  87. OMEPRAZOLE. [Concomitant]
     Active Substance: OMEPRAZOLE
     Indication: PRODUCT USED FOR UNKNOWN INDICATION
     Dosage: 1 DF, QD(1DF=TWO CAPSULES BY MOUTH DAILY 1 HR PRIOR TO FIRST MEAL OF THE DAY FOR STOMACH,1DF=1 CAP
     Route: 048
     Dates: start: 20091118, end: 20101119
  88. OMEPRAZOLE. [Concomitant]
     Active Substance: OMEPRAZOLE
     Indication: PRODUCT USED FOR UNKNOWN INDICATION
     Dosage: 1 DF, QD(1DF=TWO CAPSULES BY MOUTH DAILY 1 HR PRIOR TO FIRST MEAL OF THE DAY FOR STOMACH,1DF=1 CAP
     Route: 048
     Dates: start: 20080528, end: 20090529
  89. OMEPRAZOLE. [Concomitant]
     Active Substance: OMEPRAZOLE
     Indication: PRODUCT USED FOR UNKNOWN INDICATION
     Dosage: 1 DF, QD(1DF=TWO CAPSULES BY MOUTH DAILY 1 HR PRIOR TO FIRST MEAL OF THE DAY FOR STOMACH,1DF=1 CAP
     Route: 048
     Dates: start: 20070123, end: 20070126
  90. SIMVASTATIN. [Concomitant]
     Active Substance: SIMVASTATIN
     Indication: PRODUCT USED FOR UNKNOWN INDICATION
     Dosage: 1 DF, QD (1DF=ONE-HALF TABLET)
     Route: 048
     Dates: start: 20160615
  91. SIMVASTATIN. [Concomitant]
     Active Substance: SIMVASTATIN
     Indication: PRODUCT USED FOR UNKNOWN INDICATION
     Dosage: 1 DF, QD (1DF=ONE-HALF TABLET)
     Route: 048
     Dates: start: 20151023, end: 20161023
  92. HYDROXYZINE PAMOATE. [Concomitant]
     Active Substance: HYDROXYZINE PAMOATE
     Indication: PRODUCT USED FOR UNKNOWN INDICATION
     Dosage: UNK (1 DF=01 CAP)
     Route: 048
     Dates: end: 20160126
  93. HYDROXYZINE PAMOATE. [Concomitant]
     Active Substance: HYDROXYZINE PAMOATE
     Indication: PRODUCT USED FOR UNKNOWN INDICATION
     Dosage: 1 DF, PRN (1 DF=01 CAP)
     Route: 048
     Dates: start: 20141212, end: 20151213
  94. BUSPIRONE HCL [Concomitant]
     Active Substance: BUSPIRONE HYDROCHLORIDE
     Indication: ANXIETY
     Dosage: DAYS SUPPLY: 30, QUANTITY: 30, DAYS SUPPLY: 30, QUANTITY: 90
     Route: 065
     Dates: end: 20160925
  95. BUSPIRONE HCL [Concomitant]
     Active Substance: BUSPIRONE HYDROCHLORIDE
     Indication: PRODUCT USED FOR UNKNOWN INDICATION
     Dosage: UNK(DAYS SUPPLY: 30, QUANTITY: 30, DAYS SUPPLY: 30, QUANTITY: 90)
     Route: 065
     Dates: end: 20160126
  96. BUSPIRONE HCL [Concomitant]
     Active Substance: BUSPIRONE HYDROCHLORIDE
     Indication: PRODUCT USED FOR UNKNOWN INDICATION
     Dosage: 1 TAB, TID (DAYS SUPPLY: 30, QUANTITY: 30, DAYS SUPPLY: 30, QUANTITY: 90)
     Route: 048
     Dates: start: 20141212, end: 20151213
  97. BUSPIRONE HCL [Concomitant]
     Active Substance: BUSPIRONE HYDROCHLORIDE
     Indication: PRODUCT USED FOR UNKNOWN INDICATION
     Dosage: 1 TAB, TID (DAYS SUPPLY: 30, QUANTITY: 30, DAYS SUPPLY: 30, QUANTITY: 90)
     Route: 048
     Dates: start: 20120808, end: 20130809
  98. ACETAMINOPHEN. [Concomitant]
     Active Substance: ACETAMINOPHEN
     Indication: PRODUCT USED FOR UNKNOWN INDICATION
     Dosage: UNK
     Route: 065
     Dates: end: 20160126
  99. ACETAMINOPHEN. [Concomitant]
     Active Substance: ACETAMINOPHEN
     Indication: PRODUCT USED FOR UNKNOWN INDICATION
     Dosage: 650 MG, PRN
     Route: 048
     Dates: start: 20070123, end: 20070126
  100. LOVASTATIN. [Concomitant]
     Active Substance: LOVASTATIN
     Indication: PRODUCT USED FOR UNKNOWN INDICATION
     Dosage: 1 DF, QD
     Route: 048
     Dates: start: 20150220, end: 20160221
  101. CYCLOBENZAPRINE HCL [Concomitant]
     Active Substance: CYCLOBENZAPRINE HYDROCHLORIDE
     Indication: PRODUCT USED FOR UNKNOWN INDICATION
     Dosage: UNK
     Route: 065
     Dates: end: 20140605
  102. LITHIUM CARBONATE. [Concomitant]
     Active Substance: LITHIUM CARBONATE
     Indication: PRODUCT USED FOR UNKNOWN INDICATION
     Dosage: 1 TAB, QD (1 DF: DAYS SUPPLY: 30, QUANTITY: 30, DAYS SUPPLY: 30, QUANTITY: 60)
     Route: 048
     Dates: start: 20111031, end: 20121031
  103. ARIPIPRAZOLE. [Suspect]
     Active Substance: ARIPIPRAZOLE
     Dosage: 30 MG, UNK(TAKE 4 TABLETS BY MOUTH EVERY MORNING FOR 14 DAYS, THEN TAKE 3 + 1/2 TABLETS EVERY MOR)
     Route: 065
     Dates: end: 20140727
  104. ARIPIPRAZOLE. [Suspect]
     Active Substance: ARIPIPRAZOLE
     Dosage: 15 MG, QD (TAKE 4 TABLETS BY MOUTH EVERY MORNING FOR 14 DAYS, THEN TAKE 3 + 1/2 TABLETS EVERY MOR
     Route: 048
     Dates: start: 20160119, end: 20160126
  105. GEODON [Concomitant]
     Active Substance: ZIPRASIDONE HYDROCHLORIDE\ZIPRASIDONE MESYLATE
     Indication: PRODUCT USED FOR UNKNOWN INDICATION
     Dosage: UNK
     Route: 065
  106. INVEGA [Concomitant]
     Active Substance: PALIPERIDONE
     Indication: PRODUCT USED FOR UNKNOWN INDICATION
     Dosage: UNK
     Route: 065
  107. FLUOXETINE HCL [Concomitant]
     Active Substance: FLUOXETINE HYDROCHLORIDE
     Indication: PRODUCT USED FOR UNKNOWN INDICATION
     Dosage: 20 MG, UNK (1DF=TWO CAPSULES, 1 DF= 3 CAP, 1 DF: DAYS SUPPLY: 30, QUANTITY: 90, 1 DF: 1 CAP)
     Route: 065
     Dates: end: 20151213
  108. FLUOXETINE HCL [Concomitant]
     Active Substance: FLUOXETINE HYDROCHLORIDE
     Indication: PRODUCT USED FOR UNKNOWN INDICATION
     Dosage: 1 DF, BID (1DF=TWO CAPSULES, 1 DF= 3 CAP, 1 DF: DAYS SUPPLY: 30, QUANTITY: 90, 1 DF: 1 CAP)
     Route: 048
     Dates: start: 20150513, end: 20160513
  109. FLUOXETINE HCL [Concomitant]
     Active Substance: FLUOXETINE HYDROCHLORIDE
     Indication: PRODUCT USED FOR UNKNOWN INDICATION
     Dosage: 40 MG, QD (1DF=TWO CAPSULES, 1 DF= 3 CAP, 1 DF: DAYS SUPPLY: 30, QUANTITY: 90, 1 DF: 1 CAP)
     Route: 048
     Dates: start: 20160108, end: 20160126
  110. FLUOXETINE HCL [Concomitant]
     Active Substance: FLUOXETINE HYDROCHLORIDE
     Indication: PRODUCT USED FOR UNKNOWN INDICATION
     Dosage: 1 DF, QD (1DF=TWO CAPSULES, 1 DF= 3 CAP, 1 DF: DAYS SUPPLY: 30, QUANTITY: 90, 1 DF: 1 CAP)
     Route: 048
     Dates: start: 20140131, end: 20150201
  111. FLUOXETINE HCL [Concomitant]
     Active Substance: FLUOXETINE HYDROCHLORIDE
     Indication: PRODUCT USED FOR UNKNOWN INDICATION
     Dosage: 1 DF, QD (1DF=TWO CAPSULES, 1 DF= 3 CAP, 1 DF: DAYS SUPPLY: 30, QUANTITY: 90, 1 DF: 1 CAP)
     Route: 048
     Dates: start: 20120529, end: 20130530
  112. BUPROPION HCL [Concomitant]
     Active Substance: BUPROPION HYDROCHLORIDE
     Indication: DEPRESSION
     Dosage: 100 MG,Q1H12(BUPROPION HCL 100MG 12HR SA TAB, TAKE DNP TART.PT BY MOUTH EVERY MORN FOR MOOD OR SMOKI
     Route: 065
     Dates: end: 20160925
  113. BUPROPION HCL [Concomitant]
     Active Substance: BUPROPION HYDROCHLORIDE
     Indication: PRODUCT USED FOR UNKNOWN INDICATION
     Dosage: 100 MG, QD (BUPROPION HCL 100MG 12HR SA TAB, TAKE DNP TART.PT BY MOUTH EVERY MORN FOR MOOD OR SMOKIN
     Route: 048
     Dates: start: 20160106, end: 20160107
  114. BUPROPION HCL [Concomitant]
     Active Substance: BUPROPION HYDROCHLORIDE
     Indication: PRODUCT USED FOR UNKNOWN INDICATION
     Dosage: 1 TAB, QD(BUPROPION HCL 100MG 12HR SA TAB, TAKE DNP TART.PT BY MOUTH EVERY MORN FOR MOOD OR SMOKING,
     Route: 048
     Dates: start: 20130802, end: 20140803
  115. BUPROPION HCL [Concomitant]
     Active Substance: BUPROPION HYDROCHLORIDE
     Indication: PRODUCT USED FOR UNKNOWN INDICATION
     Dosage: 1 TAB, QD(BUPROPION HCL 100MG 12HR SA TAB, TAKE DNP TART.PT BY MOUTH EVERY MORN FOR MOOD OR SMOKING,
     Route: 048
     Dates: start: 20121029, end: 20131030
  116. BUPROPION HCL [Concomitant]
     Active Substance: BUPROPION HYDROCHLORIDE
     Indication: PRODUCT USED FOR UNKNOWN INDICATION
     Dosage: 1 TAB, QD(BUPROPION HCL 100MG 12HR SA TAB, TAKE DNP TART.PT BY MOUTH EVERY MORN FOR MOOD OR SMOKING,
     Route: 048
     Dates: start: 20120529, end: 20130530
  117. LISINOPRIL. [Concomitant]
     Active Substance: LISINOPRIL
     Indication: PRODUCT USED FOR UNKNOWN INDICATION
     Dosage: 1 DF, QD (1DF=ONE-HALF TABLET)
     Route: 048
     Dates: start: 20160420
  118. LISINOPRIL. [Concomitant]
     Active Substance: LISINOPRIL
     Indication: PRODUCT USED FOR UNKNOWN INDICATION
     Dosage: 20 MG, QD (1DF=ONE-HALF TABLET)
     Route: 048
     Dates: start: 20160126, end: 20160126
  119. OMEPRAZOLE. [Concomitant]
     Active Substance: OMEPRAZOLE
     Indication: PRODUCT USED FOR UNKNOWN INDICATION
     Dosage: UNK(1DF=TWO CAPSULES BY MOUTH DAILY 1 HR PRIOR TO FIRST MEAL OF THE DAY FOR STOMACH,1DF=1 CAP)
     Route: 065
     Dates: end: 20160126
  120. OMEPRAZOLE. [Concomitant]
     Active Substance: OMEPRAZOLE
     Indication: PRODUCT USED FOR UNKNOWN INDICATION
     Dosage: 1 DF, QD(1DF=TWO CAPSULES BY MOUTH DAILY 1 HR PRIOR TO FIRST MEAL OF THE DAY FOR STOMACH,1DF=1 CAP
     Route: 048
     Dates: start: 20160615
  121. OMEPRAZOLE. [Concomitant]
     Active Substance: OMEPRAZOLE
     Indication: PRODUCT USED FOR UNKNOWN INDICATION
     Dosage: 1 DF, QD(1DF=TWO CAPSULES BY MOUTH DAILY 1 HR PRIOR TO FIRST MEAL OF THE DAY FOR STOMACH,1DF=1 CAP
     Route: 048
     Dates: start: 20101130, end: 20111201
  122. SIMVASTATIN. [Concomitant]
     Active Substance: SIMVASTATIN
     Indication: PRODUCT USED FOR UNKNOWN INDICATION
     Dosage: 1 DF, QD (1DF=ONE-HALF TABLET)
     Route: 048
     Dates: start: 20160420
  123. SIMVASTATIN. [Concomitant]
     Active Substance: SIMVASTATIN
     Indication: PRODUCT USED FOR UNKNOWN INDICATION
     Dosage: 40 MG, QD (1DF=ONE-HALF TABLET)
     Route: 048
     Dates: start: 20160106, end: 20160126
  124. HYDROXYZINE PAMOATE. [Concomitant]
     Active Substance: HYDROXYZINE PAMOATE
     Indication: PRODUCT USED FOR UNKNOWN INDICATION
     Dosage: 25 MG, UNK (1 DF=01 CAP)
     Route: 065
     Dates: end: 20151213
  125. HYDROXYZINE PAMOATE. [Concomitant]
     Active Substance: HYDROXYZINE PAMOATE
     Indication: PRODUCT USED FOR UNKNOWN INDICATION
     Dosage: 1 DF, PRN (1 DF=01 CAP)
     Route: 048
     Dates: start: 20160126, end: 20170126
  126. HYDROXYZINE PAMOATE. [Concomitant]
     Active Substance: HYDROXYZINE PAMOATE
     Indication: PRODUCT USED FOR UNKNOWN INDICATION
     Dosage: 1 DF, BID  (1 DF=01 CAP)
     Route: 048
     Dates: start: 20081023, end: 20091024
  127. BUSPIRONE HCL [Concomitant]
     Active Substance: BUSPIRONE HYDROCHLORIDE
     Indication: PRODUCT USED FOR UNKNOWN INDICATION
     Dosage: 10 MG, UNK(DAYS SUPPLY: 30, QUANTITY: 30, DAYS SUPPLY: 30, QUANTITY: 90)
     Route: 065
     Dates: end: 20151213
  128. BUSPIRONE HCL [Concomitant]
     Active Substance: BUSPIRONE HYDROCHLORIDE
     Indication: PRODUCT USED FOR UNKNOWN INDICATION
     Dosage: 1 TAB, TID (DAYS SUPPLY: 30, QUANTITY: 30, DAYS SUPPLY: 30, QUANTITY: 90)
     Route: 048
     Dates: start: 20130802, end: 20140803
  129. ONDANSETRON [Concomitant]
     Active Substance: ONDANSETRON
     Dosage: 4 MG, PRN
     Route: 048
     Dates: start: 20160108, end: 20160126
  130. ACETAMINOPHEN. [Concomitant]
     Active Substance: ACETAMINOPHEN
     Indication: PYREXIA
     Dosage: UNK
     Route: 065
     Dates: end: 20160324
  131. ACETAMINOPHEN. [Concomitant]
     Active Substance: ACETAMINOPHEN
     Indication: PRODUCT USED FOR UNKNOWN INDICATION
     Dosage: 1000 MG, PRN
     Route: 048
     Dates: start: 20160108, end: 20160126
  132. LOVASTATIN. [Concomitant]
     Active Substance: LOVASTATIN
     Indication: BLOOD CHOLESTEROL
     Dosage: UNK
     Route: 065
     Dates: end: 20160221
  133. NAPROXEN. [Concomitant]
     Active Substance: NAPROXEN
     Indication: PRODUCT USED FOR UNKNOWN INDICATION
     Dosage: 500 MG, BID
     Route: 048
     Dates: start: 20070123, end: 20070126
  134. PROMETHAZINE HCL [Concomitant]
     Active Substance: PROMETHAZINE HYDROCHLORIDE
     Indication: PRODUCT USED FOR UNKNOWN INDICATION
     Dosage: 25 MG, UNK
     Route: 065
     Dates: end: 20151122
  135. LITHIUM CARBONATE. [Concomitant]
     Active Substance: LITHIUM CARBONATE
     Indication: PRODUCT USED FOR UNKNOWN INDICATION
     Dosage: 1 TAB, QD (1 DF: DAYS SUPPLY: 30, QUANTITY: 30, DAYS SUPPLY: 30, QUANTITY: 60)
     Route: 048
     Dates: start: 20111227, end: 20121227
  136. LITHIUM CARBONATE. [Concomitant]
     Active Substance: LITHIUM CARBONATE
     Indication: PRODUCT USED FOR UNKNOWN INDICATION
     Dosage: 1 TAB, QD (1 DF: DAYS SUPPLY: 30, QUANTITY: 30, DAYS SUPPLY: 30, QUANTITY: 60)
     Route: 048
     Dates: start: 20110228, end: 20120229
  137. LITHIUM CARBONATE. [Concomitant]
     Active Substance: LITHIUM CARBONATE
     Indication: PRODUCT USED FOR UNKNOWN INDICATION
     Dosage: 1 TAB, QD (1 DF: DAYS SUPPLY: 30, QUANTITY: 30, DAYS SUPPLY: 30, QUANTITY: 60
     Route: 048
     Dates: start: 20070918, end: 20080918
  138. BETIMOL [Concomitant]
     Active Substance: TIMOLOL
     Indication: PRODUCT USED FOR UNKNOWN INDICATION
     Route: 065
  139. ARIPIPRAZOLE. [Suspect]
     Active Substance: ARIPIPRAZOLE
     Dosage: 30 MG, UNK(TAKE 4 TABLETS BY MOUTH EVERY MORNING FOR 14 DAYS, THEN TAKE 3 + 1/2 TABLETS EVERY MOR)
     Route: 065
     Dates: end: 20160925
  140. ARIPIPRAZOLE. [Suspect]
     Active Substance: ARIPIPRAZOLE
     Dosage: 30 MG, UNK(TAKE 4 TABLETS BY MOUTH EVERY MORNING FOR 14 DAYS, THEN TAKE 3 + 1/2 TABLETS EVERY MOR)
     Route: 065
     Dates: end: 20160126
  141. ARIPIPRAZOLE. [Suspect]
     Active Substance: ARIPIPRAZOLE
     Dosage: 1 DF, UNK(TAKE 4 TABLETS BY MOUTH EVERY MORNING FOR 14 DAYS, THEN TAKE 3 + 1/2 TABLETS EVERY MOR)
     Route: 048
     Dates: start: 20160223
  142. ARIPIPRAZOLE. [Suspect]
     Active Substance: ARIPIPRAZOLE
     Dosage: 1 DF,UNK(TAKE 4 TABLETS BY MOUTH EVERY MORNING FOR 14 DAYS, THEN TAKE 3 + 1/2 TABLETS EVERY MOR)
     Route: 048
     Dates: start: 20160126, end: 20170126
  143. ARIPIPRAZOLE. [Suspect]
     Active Substance: ARIPIPRAZOLE
     Dosage: 1 TAB, QD (TAKE 4 TABLETS BY MOUTH EVERY MORNING FOR 14 DAYS, THEN TAKE 3 + 1/2 TABLETS EVERY MOR
     Route: 048
     Dates: start: 20150925, end: 20160925
  144. ARIPIPRAZOLE. [Suspect]
     Active Substance: ARIPIPRAZOLE
     Dosage: 30 MG, QD (TAKE 4 TABLETS BY MOUTH EVERY MORNING FOR 14 DAYS, THEN TAKE 3 + 1/2 TABLETS EVERY MOR
     Route: 048
     Dates: start: 20160107, end: 20160119
  145. ARIPIPRAZOLE. [Suspect]
     Active Substance: ARIPIPRAZOLE
     Dosage: 1 TAB, QD (TAKE 4 TABLETS BY MOUTH EVERY MORNING FOR 14 DAYS, THEN TAKE 3 + 1/2 TABLETS EVERY MOR
     Route: 048
     Dates: start: 20141007, end: 20151008
  146. ARIPIPRAZOLE. [Suspect]
     Active Substance: ARIPIPRAZOLE
     Dosage: 1 DF, QD (TAKE 4 TABLETS BY MOUTH EVERY MORNING FOR 14 DAYS, THEN TAKE 3 + 1/2 TABLETS EVERY MOR)
     Route: 048
     Dates: start: 20130129, end: 20140130
  147. APOKYN [Concomitant]
     Active Substance: APOMORPHINE HYDROCHLORIDE
     Indication: PRODUCT USED FOR UNKNOWN INDICATION
     Dosage: UNK
     Route: 065
  148. FLUOXETINE HCL [Concomitant]
     Active Substance: FLUOXETINE HYDROCHLORIDE
     Indication: PRODUCT USED FOR UNKNOWN INDICATION
     Dosage: 1 DF, BID (1DF=TWO CAPSULES, 1 DF= 3 CAP, 1 DF: DAYS SUPPLY: 30, QUANTITY: 90, 1 DF: 1 CAP)
     Route: 048
     Dates: start: 20160126, end: 20170126
  149. FLUOXETINE HCL [Concomitant]
     Active Substance: FLUOXETINE HYDROCHLORIDE
     Indication: PRODUCT USED FOR UNKNOWN INDICATION
     Dosage: 1 DF, QD (1DF=TWO CAPSULES, 1 DF= 3 CAP, 1 DF: DAYS SUPPLY: 30, QUANTITY: 90, 1 DF: 1 CAP)
     Route: 048
     Dates: start: 20130129, end: 20140130
  150. FLUOXETINE HCL [Concomitant]
     Active Substance: FLUOXETINE HYDROCHLORIDE
     Indication: PRODUCT USED FOR UNKNOWN INDICATION
     Dosage: 1 DF, QD (1DF=TWO CAPSULES, 1 DF= 3 CAP, 1 DF: DAYS SUPPLY: 30, QUANTITY: 90, 1 DF: 1 CAP)
     Route: 048
     Dates: start: 20121029, end: 20131030
  151. FLUOXETINE HCL [Concomitant]
     Active Substance: FLUOXETINE HYDROCHLORIDE
     Indication: PRODUCT USED FOR UNKNOWN INDICATION
     Dosage: 1 DF, QD (1DF=TWO CAPSULES, 1 DF= 3 CAP, 1 DF: DAYS SUPPLY: 30, QUANTITY: 90, 1 DF: 1 CAP)
     Route: 048
     Dates: start: 20040513, end: 20050514
  152. BUPROPION HCL [Concomitant]
     Active Substance: BUPROPION HYDROCHLORIDE
     Indication: PRODUCT USED FOR UNKNOWN INDICATION
     Dosage: 1 TAB, QD(BUPROPION HCL 100MG 12HR SA TAB, TAKE DNP TART.PT BY MOUTH EVERY MORN FOR MOOD OR SMOKING,
     Route: 048
     Dates: start: 20140605, end: 20150606
  153. OMEPRAZOLE. [Concomitant]
     Active Substance: OMEPRAZOLE
     Indication: ADVERSE EVENT
     Dosage: 20 MG,UNK(1DF=TWO CAPSULES BY MOUTH DAILY 1 HR PRIOR TO FIRST MEAL OF THE DAY FOR STOMACH,1DF=1 CAP)
     Route: 065
     Dates: end: 20160526
  154. OMEPRAZOLE. [Concomitant]
     Active Substance: OMEPRAZOLE
     Indication: PRODUCT USED FOR UNKNOWN INDICATION
     Dosage: 1 DF, QD(1DF=TWO CAPSULES BY MOUTH DAILY 1 HR PRIOR TO FIRST MEAL OF THE DAY FOR STOMACH,1DF=1 CAP
     Route: 048
     Dates: start: 20111031, end: 20121031
  155. SIMVASTATIN. [Concomitant]
     Active Substance: SIMVASTATIN
     Indication: BLOOD CHOLESTEROL
     Dosage: 80 MG, UNK (1DF=ONE-HALF TABLET)
     Route: 065
     Dates: end: 20161023
  156. SIMVASTATIN. [Concomitant]
     Active Substance: SIMVASTATIN
     Indication: PRODUCT USED FOR UNKNOWN INDICATION
     Dosage: 1 DF, QD (1DF=ONE-HALF TABLET)
     Route: 048
     Dates: start: 20160223
  157. HYDROXYZINE PAMOATE. [Concomitant]
     Active Substance: HYDROXYZINE PAMOATE
     Indication: PRODUCT USED FOR UNKNOWN INDICATION
     Dosage: 1 DF, PRN (1 DF=01 CAP)
     Route: 048
     Dates: start: 20150925, end: 20160925
  158. HYDROXYZINE PAMOATE. [Concomitant]
     Active Substance: HYDROXYZINE PAMOATE
     Indication: PRODUCT USED FOR UNKNOWN INDICATION
     Dosage: 25 MG, PRN (1 DF=01 CAP)
     Route: 048
     Dates: start: 20160106, end: 20160126
  159. HYDROXYZINE PAMOATE. [Concomitant]
     Active Substance: HYDROXYZINE PAMOATE
     Indication: PRODUCT USED FOR UNKNOWN INDICATION
     Dosage: 1 DF, PRN (1 DF=01 CAP)
     Route: 048
     Dates: start: 20140610, end: 20150611
  160. BUSPIRONE HCL [Concomitant]
     Active Substance: BUSPIRONE HYDROCHLORIDE
     Indication: PRODUCT USED FOR UNKNOWN INDICATION
     Dosage: 1 TAB, TID (DAYS SUPPLY: 30, QUANTITY: 30, DAYS SUPPLY: 30, QUANTITY: 90)
     Route: 048
     Dates: start: 20160414
  161. BUSPIRONE HCL [Concomitant]
     Active Substance: BUSPIRONE HYDROCHLORIDE
     Indication: PRODUCT USED FOR UNKNOWN INDICATION
     Dosage: 1 TAB, TID (DAYS SUPPLY: 30, QUANTITY: 30, DAYS SUPPLY: 30, QUANTITY: 90)
     Route: 048
     Dates: start: 20160223
  162. BUSPIRONE HCL [Concomitant]
     Active Substance: BUSPIRONE HYDROCHLORIDE
     Indication: PRODUCT USED FOR UNKNOWN INDICATION
     Dosage: 1 TAB, TID (DAYS SUPPLY: 30, QUANTITY: 30, DAYS SUPPLY: 30, QUANTITY: 90)
     Route: 048
     Dates: start: 20141007, end: 20151008
  163. BUSPIRONE HCL [Concomitant]
     Active Substance: BUSPIRONE HYDROCHLORIDE
     Indication: PRODUCT USED FOR UNKNOWN INDICATION
     Dosage: 10 MG, QD (DAYS SUPPLY: 30, QUANTITY: 30, DAYS SUPPLY: 30, QUANTITY: 90)
     Route: 048
     Dates: start: 20141111
  164. ONDANSETRON [Concomitant]
     Active Substance: ONDANSETRON
     Indication: PRODUCT USED FOR UNKNOWN INDICATION
     Dosage: 1 TAB, PRN
     Route: 048
     Dates: start: 20160126, end: 20170126
  165. CYCLOBENZAPRINE HCL [Concomitant]
     Active Substance: CYCLOBENZAPRINE HYDROCHLORIDE
     Indication: MUSCLE RELAXANT THERAPY
     Dosage: 1 DF, PRN
     Route: 065
     Dates: start: 20140506, end: 20140605
  166. IBUPROFEN. [Concomitant]
     Active Substance: IBUPROFEN
     Indication: PAIN
     Dosage: UNK
     Route: 065
     Dates: end: 20140605
  167. RISPERIDONE. [Concomitant]
     Active Substance: RISPERIDONE
     Indication: PRODUCT USED FOR UNKNOWN INDICATION
     Dosage: 1 DF, QD
     Route: 048
     Dates: start: 20111031, end: 20121031
  168. RISPERIDONE. [Concomitant]
     Active Substance: RISPERIDONE
     Indication: PRODUCT USED FOR UNKNOWN INDICATION
     Dosage: UNK
     Route: 065
  169. LITHIUM CARBONATE. [Concomitant]
     Active Substance: LITHIUM CARBONATE
     Indication: PRODUCT USED FOR UNKNOWN INDICATION
     Dosage: 1 TAB, QD (1 DF: DAYS SUPPLY: 30, QUANTITY: 30, DAYS SUPPLY: 30, QUANTITY: 60
     Route: 048
     Dates: start: 20070126, end: 20080127
  170. ARIPIPRAZOLE. [Suspect]
     Active Substance: ARIPIPRAZOLE
     Indication: PRODUCT USED FOR UNKNOWN INDICATION
     Dosage: 7.5 MG,UNK (FOUR TABLETS BY MOUTH EVERY MORNING FOR 14 DAYS, THEN TAKE 3 + 1/2 EVERY MORNING)
     Route: 065
     Dates: start: 2012, end: 2016
  171. ARIPIPRAZOLE. [Suspect]
     Active Substance: ARIPIPRAZOLE
     Dosage: 30 MG, UNK(TAKE 4 TABLETS BY MOUTH EVERY MORNING FOR 14 DAYS, THEN TAKE 3 + 1/2 TABLETS EVERY MOR)
     Route: 065
     Dates: end: 20150201
  172. ARIPIPRAZOLE. [Suspect]
     Active Substance: ARIPIPRAZOLE
     Dosage: 1 DF, QD (TAKE 4 TABLETS BY MOUTH EVERY MORNING FOR 14 DAYS, THEN TAKE 3 + 1/2 TABLETS EVERY MOR)
     Route: 048
     Dates: start: 20120914, end: 20130915
  173. FANAPT [Concomitant]
     Active Substance: ILOPERIDONE
     Indication: PRODUCT USED FOR UNKNOWN INDICATION
     Dosage: UNK
     Route: 065
  174. FLUOXETINE HCL [Concomitant]
     Active Substance: FLUOXETINE HYDROCHLORIDE
     Indication: PRODUCT USED FOR UNKNOWN INDICATION
     Dosage: 20 MG, BID (1DF=TWO CAPSULES, 1 DF= 3 CAP, 1 DF: DAYS SUPPLY: 30, QUANTITY: 90, 1 DF: 1 CAP)
     Route: 048
     Dates: start: 20160806
  175. FLUOXETINE HCL [Concomitant]
     Active Substance: FLUOXETINE HYDROCHLORIDE
     Indication: PRODUCT USED FOR UNKNOWN INDICATION
     Dosage: 1 DF, BID (1DF=TWO CAPSULES, 1 DF= 3 CAP, 1 DF: DAYS SUPPLY: 30, QUANTITY: 90, 1 DF: 1 CAP)
     Route: 048
     Dates: start: 20160801
  176. FLUOXETINE HCL [Concomitant]
     Active Substance: FLUOXETINE HYDROCHLORIDE
     Indication: PRODUCT USED FOR UNKNOWN INDICATION
     Dosage: 20 MG, QD (1DF=TWO CAPSULES, 1 DF= 3 CAP, 1 DF: DAYS SUPPLY: 30, QUANTITY: 90, 1 DF: 1 CAP)
     Route: 048
     Dates: start: 20160107, end: 20170126
  177. BUPROPION HCL [Concomitant]
     Active Substance: BUPROPION HYDROCHLORIDE
     Indication: PRODUCT USED FOR UNKNOWN INDICATION
     Dosage: 1 TAB, BID(BUPROPION HCL 100MG 12HR SA TAB, TAKE DNP TART.PT BY MOUTH EVERY MORN FOR MOOD OR SMOKING
     Route: 048
     Dates: start: 20160801
  178. BUPROPION HCL [Concomitant]
     Active Substance: BUPROPION HYDROCHLORIDE
     Indication: PRODUCT USED FOR UNKNOWN INDICATION
     Dosage: 1 TAB, BID(BUPROPION HCL 100MG 12HR SA TAB, TAKE DNP TART.PT BY MOUTH EVERY MORN FOR MOOD OR SMOKING
     Route: 048
     Dates: start: 20160414
  179. BUPROPION HCL [Concomitant]
     Active Substance: BUPROPION HYDROCHLORIDE
     Indication: PRODUCT USED FOR UNKNOWN INDICATION
     Dosage: 1 TAB, BID(BUPROPION HCL 100MG 12HR SA TAB, TAKE DNP TART.PT BY MOUTH EVERY MORN FOR MOOD OR SMOKING
     Route: 048
     Dates: start: 20141007, end: 20151008
  180. BUPROPION HCL [Concomitant]
     Active Substance: BUPROPION HYDROCHLORIDE
     Indication: PRODUCT USED FOR UNKNOWN INDICATION
     Dosage: 200 MG, QD(BUPROPION HCL 100MG 12HR SA TAB, TAKE DNP TART.PT BY MOUTH EVERY MORN FOR MOOD OR SMOKING
     Route: 048
     Dates: start: 20141111
  181. BUPROPION HCL [Concomitant]
     Active Substance: BUPROPION HYDROCHLORIDE
     Indication: PRODUCT USED FOR UNKNOWN INDICATION
     Dosage: 1 TAB, QD(BUPROPION HCL 100MG 12HR SA TAB, TAKE DNP TART.PT BY MOUTH EVERY MORN FOR MOOD OR SMOKING,
     Route: 048
     Dates: start: 20110228, end: 20120229
  182. LISINOPRIL. [Concomitant]
     Active Substance: LISINOPRIL
     Indication: PRODUCT USED FOR UNKNOWN INDICATION
     Dosage: UNK  (1DF=ONE-HALF TABLET)
     Route: 065
     Dates: end: 20160112
  183. LISINOPRIL. [Concomitant]
     Active Substance: LISINOPRIL
     Indication: PRODUCT USED FOR UNKNOWN INDICATION
     Dosage: 1 DF, QD (1DF=ONE-HALF TABLET)
     Route: 048
     Dates: start: 20160615
  184. LISINOPRIL. [Concomitant]
     Active Substance: LISINOPRIL
     Indication: PRODUCT USED FOR UNKNOWN INDICATION
     Dosage: 1 DF, QD (1DF=ONE-HALF TABLET)
     Route: 048
     Dates: start: 20160223
  185. MONTELUKAST [Concomitant]
     Active Substance: MONTELUKAST SODIUM
     Indication: PRODUCT USED FOR UNKNOWN INDICATION
     Dosage: 1 DF, QD
     Route: 048
     Dates: start: 20160126, end: 20170126
  186. MONTELUKAST [Concomitant]
     Active Substance: MONTELUKAST SODIUM
     Indication: PRODUCT USED FOR UNKNOWN INDICATION
     Dosage: 10 MG, UNK
     Route: 048
     Dates: start: 20160119, end: 20160119
  187. OMEPRAZOLE. [Concomitant]
     Active Substance: OMEPRAZOLE
     Indication: PRODUCT USED FOR UNKNOWN INDICATION
     Dosage: 1 DF, QD(1DF=TWO CAPSULES BY MOUTH DAILY 1 HR PRIOR TO FIRST MEAL OF THE DAY FOR STOMACH,1DF=1 CAP
     Route: 048
     Dates: start: 20160420
  188. OMEPRAZOLE. [Concomitant]
     Active Substance: OMEPRAZOLE
     Indication: PRODUCT USED FOR UNKNOWN INDICATION
     Dosage: 1 DF, QD(1DF=TWO CAPSULES BY MOUTH DAILY 1 HR PRIOR TO FIRST MEAL OF THE DAY FOR STOMACH,1DF=1 CAP
     Route: 048
     Dates: start: 20071003, end: 20081003
  189. SIMVASTATIN. [Concomitant]
     Active Substance: SIMVASTATIN
     Indication: PRODUCT USED FOR UNKNOWN INDICATION
     Dosage: 1 DF, QD(1DF=ONE-HALF TABLET)
     Route: 048
     Dates: start: 20160126, end: 20170126
  190. HYDROXYZINE PAMOATE. [Concomitant]
     Active Substance: HYDROXYZINE PAMOATE
     Indication: PRODUCT USED FOR UNKNOWN INDICATION
     Dosage: 1 DF, PRN (1 DF=01 CAP)
     Route: 048
     Dates: start: 20160414
  191. BUSPIRONE HCL [Concomitant]
     Active Substance: BUSPIRONE HYDROCHLORIDE
     Indication: PRODUCT USED FOR UNKNOWN INDICATION
     Dosage: 1 TAB, TID(DAYS SUPPLY: 30, QUANTITY: 30, DAYS SUPPLY: 30, QUANTITY: 90)
     Route: 048
     Dates: start: 20111227, end: 20121227
  192. BUSPIRONE HCL [Concomitant]
     Active Substance: BUSPIRONE HYDROCHLORIDE
     Indication: PRODUCT USED FOR UNKNOWN INDICATION
     Dosage: 1 TAB, TID (DAYS SUPPLY: 30, QUANTITY: 30, DAYS SUPPLY: 30, QUANTITY: 90)
     Route: 048
     Dates: start: 20111031, end: 20121031
  193. BUSPIRONE HCL [Concomitant]
     Active Substance: BUSPIRONE HYDROCHLORIDE
     Indication: PRODUCT USED FOR UNKNOWN INDICATION
     Dosage: 1 TAB, TID (DAYS SUPPLY: 30, QUANTITY: 30, DAYS SUPPLY: 30, QUANTITY: 90)
     Route: 048
     Dates: start: 20101217, end: 20111218
  194. FLUTICASONE PROPIONATE. [Concomitant]
     Active Substance: FLUTICASONE PROPIONATE
     Indication: PRODUCT USED FOR UNKNOWN INDICATION
     Dosage: 1 DF, QD (1DF=INSTILL 2 SPRAY 50 MCG/SPEAY IN EACH NOSTRIL AT BEDTIME FOR BREATHING)
     Route: 045
     Dates: start: 20160223
  195. ONDANSETRON [Concomitant]
     Active Substance: ONDANSETRON
     Indication: PRODUCT USED FOR UNKNOWN INDICATION
     Dosage: 1 TAB, PRN
     Route: 048
     Dates: start: 20160223, end: 20160324
  196. DICLOFENAC NA [Concomitant]
     Active Substance: DICLOFENAC SODIUM
     Indication: INFLAMMATION
     Dosage: 1 DF, BID
     Route: 065
     Dates: start: 20150220, end: 20160221
  197. NAPROXEN. [Concomitant]
     Active Substance: NAPROXEN
     Indication: INFLAMMATION
     Dosage: 1 DF, BID
     Route: 048
     Dates: start: 20150217, end: 20160218
  198. PROMETHAZINE HCL [Concomitant]
     Active Substance: PROMETHAZINE HYDROCHLORIDE
     Dosage: 1 DF, BID
     Route: 048
     Dates: start: 20151023, end: 20151122
  199. LITHIUM CARBONATE. [Concomitant]
     Active Substance: LITHIUM CARBONATE
     Indication: PRODUCT USED FOR UNKNOWN INDICATION
     Dosage: 1 TAB, QD (1 DF: DAYS SUPPLY: 30, QUANTITY: 30, DAYS SUPPLY: 30, QUANTITY: 60
     Route: 048
     Dates: start: 20080915, end: 20090916
  200. LITHIUM CARBONATE. [Concomitant]
     Active Substance: LITHIUM CARBONATE
     Indication: PRODUCT USED FOR UNKNOWN INDICATION
     Dosage: 1 TAB, QD (1 DF: DAYS SUPPLY: 30, QUANTITY: 30, DAYS SUPPLY: 30, QUANTITY: 60
     Route: 048
     Dates: start: 20070123, end: 20080126
  201. ARIPIPRAZOLE. [Suspect]
     Active Substance: ARIPIPRAZOLE
     Indication: BIPOLAR DISORDER
     Dosage: 15 MG, UNK(TAKE 4 TABLETS BY MOUTH EVERY MORNING FOR 14 DAYS, THEN TAKE 3 + 1/2 TABLETS EVERY MOR)
     Route: 065
     Dates: start: 2012, end: 2016
  202. ARIPIPRAZOLE. [Suspect]
     Active Substance: ARIPIPRAZOLE
     Dosage: 30 MG, UNK(TAKE 4 TABLETS BY MOUTH EVERY MORNING FOR 14 DAYS, THEN TAKE 3 + 1/2 TABLETS EVERY MOR)
     Route: 065
     Dates: end: 20151008
  203. ARIPIPRAZOLE. [Suspect]
     Active Substance: ARIPIPRAZOLE
     Dosage: 1 TAB, QD (TAKE 4 TABLETS BY MOUTH EVERY MORNING FOR 14 DAYS, THEN TAKE 3 + 1/2 TABLETS EVERY MOR)
     Route: 048
     Dates: start: 20140131, end: 20150201
  204. HALDOL [Concomitant]
     Active Substance: HALOPERIDOL
     Indication: PRODUCT USED FOR UNKNOWN INDICATION
     Dosage: UNK
     Route: 065
  205. MIRAPEX [Concomitant]
     Active Substance: PRAMIPEXOLE DIHYDROCHLORIDE
     Indication: PRODUCT USED FOR UNKNOWN INDICATION
     Dosage: UNK
     Route: 065
  206. REGLAN [Concomitant]
     Active Substance: METOCLOPRAMIDE HYDROCHLORIDE
     Indication: PRODUCT USED FOR UNKNOWN INDICATION
     Dosage: UNK
     Route: 065
  207. FLUOXETINE HCL [Concomitant]
     Active Substance: FLUOXETINE HYDROCHLORIDE
     Indication: PRODUCT USED FOR UNKNOWN INDICATION
     Dosage: 1 DF, QD (1DF=TWO CAPSULES, 1 DF= 3 CAP, 1 DF: DAYS SUPPLY: 30, QUANTITY: 90, 1 DF: 1 CAP)
     Route: 048
     Dates: start: 20111227, end: 20121227
  208. FLUOXETINE HCL [Concomitant]
     Active Substance: FLUOXETINE HYDROCHLORIDE
     Indication: PRODUCT USED FOR UNKNOWN INDICATION
     Dosage: 1 DF, QD (1DF=TWO CAPSULES, 1 DF= 3 CAP, 1 DF: DAYS SUPPLY: 30, QUANTITY: 90, 1 DF: 1 CAP)
     Route: 048
     Dates: start: 20111031, end: 20121031
  209. BUPROPION HCL [Concomitant]
     Active Substance: BUPROPION HYDROCHLORIDE
     Indication: PRODUCT USED FOR UNKNOWN INDICATION
     Dosage: 100 MG, QD(BUPROPION HCL 100MG 12HR SA TAB, TAKE DNP TART.PT BY MOUTH EVERY MORN FOR MOOD OR SMOKING
     Route: 048
     Dates: start: 20160107, end: 20170126
  210. BUPROPION HCL [Concomitant]
     Active Substance: BUPROPION HYDROCHLORIDE
     Indication: PRODUCT USED FOR UNKNOWN INDICATION
     Dosage: 1 TAB, QD(BUPROPION HCL 100MG 12HR SA TAB, TAKE DNP TART.PT BY MOUTH EVERY MORN FOR MOOD OR SMOKING,
     Route: 048
     Dates: start: 20120808, end: 20130809
  211. BUPROPION HCL [Concomitant]
     Active Substance: BUPROPION HYDROCHLORIDE
     Indication: PRODUCT USED FOR UNKNOWN INDICATION
     Dosage: 1 TAB, QD(BUPROPION HCL 100MG 12HR SA TAB, TAKE DNP TART.PT BY MOUTH EVERY MORN FOR MOOD OR SMOKING,
     Route: 048
     Dates: start: 20111227, end: 20121227
  212. BUPROPION HCL [Concomitant]
     Active Substance: BUPROPION HYDROCHLORIDE
     Indication: PRODUCT USED FOR UNKNOWN INDICATION
     Dosage: 1 TAB, QD(BUPROPION HCL 100MG 12HR SA TAB, TAKE DNP TART.PT BY MOUTH EVERY MORN FOR MOOD OR SMOKING,
     Route: 048
     Dates: start: 20100617, end: 20110618
  213. BUPROPION HCL [Concomitant]
     Active Substance: BUPROPION HYDROCHLORIDE
     Indication: PRODUCT USED FOR UNKNOWN INDICATION
     Dosage: 1 TAB, QD(BUPROPION HCL 100MG 12HR SA TAB, TAKE DNP TART.PT BY MOUTH EVERY MORN FOR MOOD OR SMOKING,
     Route: 048
     Dates: start: 20090218, end: 20100219
  214. LISINOPRIL. [Concomitant]
     Active Substance: LISINOPRIL
     Indication: PRODUCT USED FOR UNKNOWN INDICATION
     Dosage: UNK, QD (1DF=ONE-HALF TABLET)
     Route: 048
     Dates: start: 20160113, end: 20160126
  215. LORATADINE. [Concomitant]
     Active Substance: LORATADINE
     Indication: HYPERSENSITIVITY
     Dosage: UNK
     Route: 065
  216. OMEPRAZOLE. [Concomitant]
     Active Substance: OMEPRAZOLE
     Indication: PRODUCT USED FOR UNKNOWN INDICATION
     Dosage: 1 DF, QD(1DF=TWO CAPSULES BY MOUTH DAILY 1 HR PRIOR TO FIRST MEAL OF THE DAY FOR STOMACH,1DF=1 CAP
     Route: 048
     Dates: start: 20130108, end: 20140109
  217. OMEPRAZOLE. [Concomitant]
     Active Substance: OMEPRAZOLE
     Indication: PRODUCT USED FOR UNKNOWN INDICATION
     Dosage: 1 DF, QD(1DF=TWO CAPSULES BY MOUTH DAILY 1 HR PRIOR TO FIRST MEAL OF THE DAY FOR STOMACH,1DF=1 CAP
     Route: 048
     Dates: start: 20090610, end: 20100611
  218. OMEPRAZOLE. [Concomitant]
     Active Substance: OMEPRAZOLE
     Indication: PRODUCT USED FOR UNKNOWN INDICATION
     Dosage: 1 DF, QD(1DF=TWO CAPSULES BY MOUTH DAILY 1 HR PRIOR TO FIRST MEAL OF THE DAY FOR STOMACH,1DF=1 CAP
     Route: 048
     Dates: start: 20070504, end: 20080504
  219. HYDROXYZINE PAMOATE. [Concomitant]
     Active Substance: HYDROXYZINE PAMOATE
     Indication: PRODUCT USED FOR UNKNOWN INDICATION
     Dosage: 1 DF, PRN(1 DF=01 CAP)
     Route: 048
     Dates: start: 20160304
  220. BUSPIRONE HCL [Concomitant]
     Active Substance: BUSPIRONE HYDROCHLORIDE
     Indication: PRODUCT USED FOR UNKNOWN INDICATION
     Dosage: 1 TAB, TID (DAYS SUPPLY: 30, QUANTITY: 30, DAYS SUPPLY: 30, QUANTITY: 90)
     Route: 048
     Dates: start: 20160126, end: 20170126
  221. BUSPIRONE HCL [Concomitant]
     Active Substance: BUSPIRONE HYDROCHLORIDE
     Indication: PRODUCT USED FOR UNKNOWN INDICATION
     Dosage: 1 TAB, TID (DAYS SUPPLY: 30, QUANTITY: 30, DAYS SUPPLY: 30, QUANTITY: 90)
     Route: 048
     Dates: start: 20140605, end: 20150606
  222. BUSPIRONE HCL [Concomitant]
     Active Substance: BUSPIRONE HYDROCHLORIDE
     Indication: PRODUCT USED FOR UNKNOWN INDICATION
     Dosage: 1 TAB, TID (DAYS SUPPLY: 30, QUANTITY: 30, DAYS SUPPLY: 30, QUANTITY: 90)
     Route: 048
     Dates: start: 20100227, end: 20110228
  223. FLUTICASONE PROPIONATE. [Concomitant]
     Active Substance: FLUTICASONE PROPIONATE
     Indication: PRODUCT USED FOR UNKNOWN INDICATION
     Dosage: 1 DF, QD (1DF=INSTILL 2 SPRAY 50 MCG/SPEAY IN EACH NOSTRIL AT BEDTIME FOR BREATHING)
     Route: 045
     Dates: start: 20160205
  224. SILDENAFIL CITRATE. [Concomitant]
     Active Substance: SILDENAFIL CITRATE
     Indication: ERECTILE DYSFUNCTION
     Dosage: UNK (1DF= ONE-HALF TABLET)
     Route: 065
  225. CIPROFLOXACIN HCL [Concomitant]
     Active Substance: CIPROFLOXACIN HYDROCHLORIDE
     Indication: PRODUCT USED FOR UNKNOWN INDICATION
     Dosage: 1 DF, BID
     Route: 048
     Dates: start: 20141112, end: 20141212
  226. RISPERIDONE. [Concomitant]
     Active Substance: RISPERIDONE
     Indication: PRODUCT USED FOR UNKNOWN INDICATION
     Dosage: 1 DF, QD
     Route: 048
     Dates: start: 20111227, end: 20121227
  227. MELOXICAM. [Concomitant]
     Active Substance: MELOXICAM
     Indication: PRODUCT USED FOR UNKNOWN INDICATION
     Route: 065
  228. CLOTRIMAZOLE AND BETAMETHASONE [Concomitant]
     Active Substance: BETAMETHASONE\CLOTRIMAZOLE
     Indication: PRODUCT USED FOR UNKNOWN INDICATION
     Route: 065
  229. METHYLPRED [Concomitant]
     Active Substance: METHYLPREDNISOLONE
     Indication: PRODUCT USED FOR UNKNOWN INDICATION
     Dosage: UNK
     Route: 065
  230. OXYCODONE [Concomitant]
     Active Substance: OXYCODONE
     Indication: PRODUCT USED FOR UNKNOWN INDICATION
     Route: 065
  231. ARIPIPRAZOLE. [Suspect]
     Active Substance: ARIPIPRAZOLE
     Dosage: 10 MG, UNK (TAKE 4 TABLETS BY MOUTH EVERY MORNING FOR 14 DAYS, THEN TAKE 3 + 1/2 TABLETS EVERY MOR)
     Route: 048
     Dates: end: 20160126
  232. ARIPIPRAZOLE. [Suspect]
     Active Substance: ARIPIPRAZOLE
     Dosage: 30 MG, UNK(TAKE 4 TABLETS BY MOUTH EVERY MORNING FOR 14 DAYS, THEN TAKE 3 + 1/2 TABLETS EVERY MOR)
     Route: 065
     Dates: end: 20131030
  233. ARIPIPRAZOLE. [Suspect]
     Active Substance: ARIPIPRAZOLE
     Dosage: 15 MG, UNK(TAKE 4 TABLETS BY MOUTH EVERY MORNING FOR 14 DAYS, THEN TAKE 3 + 1/2 TABLETS EVERY MOR)
     Route: 048
     Dates: end: 20130530
  234. NORPROLAC [Concomitant]
     Active Substance: QUINAGOLIDE HYDROCHLORIDE
     Indication: PRODUCT USED FOR UNKNOWN INDICATION
     Dosage: UNK
     Route: 065
  235. FLUOXETINE HCL [Concomitant]
     Active Substance: FLUOXETINE HYDROCHLORIDE
     Indication: PRODUCT USED FOR UNKNOWN INDICATION
     Dosage: 1 DF, QD (1DF=TWO CAPSULES, 1 DF= 3 CAP, 1 DF: DAYS SUPPLY: 30, QUANTITY: 90, 1 DF: 1 CAP)
     Route: 048
     Dates: start: 20140605, end: 20140606
  236. BUPROPION HCL [Concomitant]
     Active Substance: BUPROPION HYDROCHLORIDE
     Indication: AFFECTIVE DISORDER
     Dosage: UNK (BUPROPION HCL 100MG 12HR SA TAB, TAKE DNP TART.PT BY MOUTH EVERY MORN FOR MOOD OR SMOKING, CESS
     Route: 065
     Dates: end: 20160126
  237. BUPROPION HCL [Concomitant]
     Active Substance: BUPROPION HYDROCHLORIDE
     Indication: PRODUCT USED FOR UNKNOWN INDICATION
     Dosage: UNK (BUPROPION HCL 100MG 12HR SA TAB, TAKE DNP TART.PT BY MOUTH EVERY MORN FOR MOOD OR SMOKING, CESS
     Route: 065
     Dates: end: 20160107
  238. BUPROPION HCL [Concomitant]
     Active Substance: BUPROPION HYDROCHLORIDE
     Indication: PRODUCT USED FOR UNKNOWN INDICATION
     Dosage: 100 MG, BID(BUPROPION HCL 100MG 12HR SA TAB, TAKE DNP TART.PT BY MOUTH EVERY MORN FOR MOOD OR SMOKIN
     Route: 048
     Dates: start: 20160806
  239. BUPROPION HCL [Concomitant]
     Active Substance: BUPROPION HYDROCHLORIDE
     Indication: PRODUCT USED FOR UNKNOWN INDICATION
     Dosage: 100 MG, QD(BUPROPION HCL 100MG 12HR SA TAB, TAKE DNP TART.PT BY MOUTH EVERY MORN FOR MOOD OR SMOKING
     Route: 048
     Dates: start: 20160108, end: 20160126
  240. LISINOPRIL. [Concomitant]
     Active Substance: LISINOPRIL
     Indication: PRODUCT USED FOR UNKNOWN INDICATION
     Dosage: 1 DF, QD (1DF=ONE-HALF TABLET)
     Route: 048
     Dates: start: 20160126, end: 20170126
  241. LISINOPRIL. [Concomitant]
     Active Substance: LISINOPRIL
     Indication: PRODUCT USED FOR UNKNOWN INDICATION
     Dosage: 10 MG, QD (1DF=ONE-HALF TABLET)
     Route: 048
     Dates: start: 20160113
  242. HYDROXYZINE PAMOATE. [Concomitant]
     Active Substance: HYDROXYZINE PAMOATE
     Indication: ANXIETY
     Dosage: 25 MG, UNK (1 DF=01 CAP)
     Route: 065
     Dates: end: 20160925
  243. HYDROXYZINE PAMOATE. [Concomitant]
     Active Substance: HYDROXYZINE PAMOATE
     Indication: PRODUCT USED FOR UNKNOWN INDICATION
     Dosage: 1 DF, PRN(1 DF=01 CAP)
     Route: 048
     Dates: start: 20141007, end: 20151008
  244. HYDROXYZINE PAMOATE. [Concomitant]
     Active Substance: HYDROXYZINE PAMOATE
     Indication: PRODUCT USED FOR UNKNOWN INDICATION
     Dosage: 1 DF, BID (1 DF=01 CAP)
     Route: 048
     Dates: start: 20100617, end: 20110618
  245. HYDROXYZINE PAMOATE. [Concomitant]
     Active Substance: HYDROXYZINE PAMOATE
     Indication: PRODUCT USED FOR UNKNOWN INDICATION
     Dosage: 1 DF, BID (1 DF=01 CAP)
     Route: 048
     Dates: start: 20100113, end: 20110114
  246. BUSPIRONE HCL [Concomitant]
     Active Substance: BUSPIRONE HYDROCHLORIDE
     Indication: PRODUCT USED FOR UNKNOWN INDICATION
     Dosage: 1 TAB, TID(DAYS SUPPLY: 30, QUANTITY: 30, DAYS SUPPLY: 30, QUANTITY: 90)
     Route: 048
     Dates: start: 20150925, end: 20160925
  247. BUSPIRONE HCL [Concomitant]
     Active Substance: BUSPIRONE HYDROCHLORIDE
     Indication: PRODUCT USED FOR UNKNOWN INDICATION
     Dosage: 10 MG, TID(DAYS SUPPLY: 30, QUANTITY: 30, DAYS SUPPLY: 30, QUANTITY: 90)
     Route: 048
     Dates: start: 20160106, end: 20160126
  248. BUSPIRONE HCL [Concomitant]
     Active Substance: BUSPIRONE HYDROCHLORIDE
     Indication: PRODUCT USED FOR UNKNOWN INDICATION
     Dosage: 1 TAB, TID (DAYS SUPPLY: 30, QUANTITY: 30, DAYS SUPPLY: 30, QUANTITY: 90)
     Route: 048
     Dates: start: 20121029, end: 20131030
  249. BUSPIRONE HCL [Concomitant]
     Active Substance: BUSPIRONE HYDROCHLORIDE
     Indication: PRODUCT USED FOR UNKNOWN INDICATION
     Dosage: 1 TAB, TID (DAYS SUPPLY: 30, QUANTITY: 30, DAYS SUPPLY: 30, QUANTITY: 90)
     Route: 048
     Dates: start: 20120529, end: 20130530
  250. FLUTICASONE PROPIONATE. [Concomitant]
     Active Substance: FLUTICASONE PROPIONATE
     Indication: PRODUCT USED FOR UNKNOWN INDICATION
     Dosage: UNK(1DF=INSTILL 2 SPRAY 50 MCG/SPEAY IN EACH NOSTRIL AT BEDTIME FOR BREATHING)
     Route: 045
  251. ACETAMINOPHEN. [Concomitant]
     Active Substance: ACETAMINOPHEN
     Indication: PRODUCT USED FOR UNKNOWN INDICATION
     Dosage: 2 DF, BID
     Route: 048
     Dates: start: 20160126, end: 20170126
  252. NAPROXEN. [Concomitant]
     Active Substance: NAPROXEN
     Indication: PAIN
     Dosage: UNK
     Route: 065
     Dates: end: 20160218
  253. IBUPROFEN. [Concomitant]
     Active Substance: IBUPROFEN
     Indication: INFLAMMATION
     Dosage: 1 DF, BID
     Route: 048
     Dates: start: 20140506, end: 20140605
  254. LITHIUM CARBONATE. [Concomitant]
     Active Substance: LITHIUM CARBONATE
     Indication: AFFECTIVE DISORDER
     Dosage: 300 MG, UNK (1 DF: DAYS SUPPLY: 30, QUANTITY: 30, DAYS SUPPLY: 30, QUANTITY: 60)
     Route: 065
     Dates: end: 20121031
  255. LITHIUM CARBONATE. [Concomitant]
     Active Substance: LITHIUM CARBONATE
     Indication: PRODUCT USED FOR UNKNOWN INDICATION
     Dosage: 1 TAB, QD (1 DF: DAYS SUPPLY: 30, QUANTITY: 30, DAYS SUPPLY: 30, QUANTITY: 60
     Route: 048
     Dates: start: 20100617, end: 20110618
  256. CARISOPRODOL. [Concomitant]
     Active Substance: CARISOPRODOL
     Indication: PRODUCT USED FOR UNKNOWN INDICATION
     Dosage: UNK
     Route: 065
  257. ARIPIPRAZOLE. [Suspect]
     Active Substance: ARIPIPRAZOLE
     Indication: AFFECTIVE DISORDER
     Dosage: 10 MG, UNK (TAKE 4 TABLETS BY MOUTH EVERY MORNING FOR 14 DAYS, THEN TAKE 3 + 1/2 TABLETS EVERY MOR)
     Route: 048
     Dates: start: 2012, end: 2016
  258. ARIPIPRAZOLE. [Suspect]
     Active Substance: ARIPIPRAZOLE
     Dosage: 30 MG, UNK(TAKE 4 TABLETS BY MOUTH EVERY MORNING FOR 14 DAYS, THEN TAKE 3 + 1/2 TABLETS EVERY MOR)
     Route: 065
     Dates: end: 20150606
  259. ARIPIPRAZOLE. [Suspect]
     Active Substance: ARIPIPRAZOLE
     Dosage: 30 MG, UNK(TAKE 4 TABLETS BY MOUTH EVERY MORNING FOR 14 DAYS, THEN TAKE 3 + 1/2 TABLETS EVERY MOR)
     Route: 065
     Dates: end: 20130915
  260. ARIPIPRAZOLE. [Suspect]
     Active Substance: ARIPIPRAZOLE
     Dosage: 1 TAB, QD (TAKE 4 TABLETS BY MOUTH EVERY MORNING FOR 14 DAYS, THEN TAKE 3 + 1/2 TABLETS EVERY MOR)
     Route: 048
     Dates: start: 20140605, end: 20150606
  261. ARIPIPRAZOLE. [Suspect]
     Active Substance: ARIPIPRAZOLE
     Dosage: 1 TAB, QD (TAKE 4 TABLETS BY MOUTH EVERY MORNING FOR 14 DAYS, THEN TAKE 3 + 1/2 TABLETS EVERY MOR)
     Route: 048
     Dates: start: 20130726, end: 20140727
  262. ARIPIPRAZOLE. [Suspect]
     Active Substance: ARIPIPRAZOLE
     Dosage: 1 DF, QD (TAKE 4 TABLETS BY MOUTH EVERY MORNING FOR 14 DAYS, THEN TAKE 3 + 1/2 TABLETS EVERY MOR)
     Route: 048
     Dates: start: 20121029, end: 20131030
  263. CLOZARIL [Concomitant]
     Active Substance: CLOZAPINE
     Indication: PRODUCT USED FOR UNKNOWN INDICATION
     Dosage: UNK
     Route: 065
  264. DOSTINEX [Concomitant]
     Active Substance: CABERGOLINE
     Indication: PRODUCT USED FOR UNKNOWN INDICATION
     Dosage: UNK
     Route: 065
  265. RISPERDAL [Concomitant]
     Active Substance: RISPERIDONE
     Indication: PRODUCT USED FOR UNKNOWN INDICATION
     Dosage: UNK
     Route: 065
  266. FLUOXETINE HCL [Concomitant]
     Active Substance: FLUOXETINE HYDROCHLORIDE
     Indication: PRODUCT USED FOR UNKNOWN INDICATION
     Dosage: UNK (1DF=TWO CAPSULES, 1 DF= 3 CAP, 1 DF: DAYS SUPPLY: 30, QUANTITY: 90, 1 DF: 1 CAP)
     Route: 048
     Dates: end: 20160126
  267. FLUOXETINE HCL [Concomitant]
     Active Substance: FLUOXETINE HYDROCHLORIDE
     Indication: PRODUCT USED FOR UNKNOWN INDICATION
     Dosage: 40 MG, QD (1DF=TWO CAPSULES, 1 DF= 3 CAP, 1 DF: DAYS SUPPLY: 30, QUANTITY: 90, 1 DF: 1 CAP)
     Route: 048
     Dates: start: 20160107, end: 20160107
  268. FLUOXETINE HCL [Concomitant]
     Active Substance: FLUOXETINE HYDROCHLORIDE
     Indication: PRODUCT USED FOR UNKNOWN INDICATION
     Dosage: 1 DF, QD (1DF=TWO CAPSULES, 1 DF= 3 CAP, 1 DF: DAYS SUPPLY: 30, QUANTITY: 90, 1 DF: 1 CAP)
     Route: 048
     Dates: start: 20141212, end: 20151213
  269. FLUOXETINE HCL [Concomitant]
     Active Substance: FLUOXETINE HYDROCHLORIDE
     Indication: PRODUCT USED FOR UNKNOWN INDICATION
     Dosage: 1 DF, QD (1DF=TWO CAPSULES, 1 DF= 3 CAP, 1 DF: DAYS SUPPLY: 30, QUANTITY: 90, 1 DF: 1 CAP)
     Route: 048
     Dates: start: 20130802, end: 20140803
  270. FLUOXETINE HCL [Concomitant]
     Active Substance: FLUOXETINE HYDROCHLORIDE
     Indication: PRODUCT USED FOR UNKNOWN INDICATION
     Dosage: 40 MG, QD (1DF=TWO CAPSULES, 1 DF= 3 CAP, 1 DF: DAYS SUPPLY: 30, QUANTITY: 90, 1 DF: 1 CAP)
     Route: 048
     Dates: start: 20141111
  271. FLUOXETINE HCL [Concomitant]
     Active Substance: FLUOXETINE HYDROCHLORIDE
     Indication: PRODUCT USED FOR UNKNOWN INDICATION
     Dosage: 1 DF, QD (1DF=TWO CAPSULES, 1 DF= 3 CAP, 1 DF: DAYS SUPPLY: 30, QUANTITY: 90, 1 DF: 1 CAP)
     Route: 048
     Dates: start: 20110228, end: 20120229
  272. BUPROPION HCL [Concomitant]
     Active Substance: BUPROPION HYDROCHLORIDE
     Indication: PRODUCT USED FOR UNKNOWN INDICATION
     Dosage: 100 MG, Q12H(BUPROPION HCL 100MG 12HR SA TAB, TAKE DNP TART.PT BY MOUTH EVERY MORN FOR MOOD OR SMOKI
     Route: 065
     Dates: end: 20151213

REACTIONS (8)
  - Compulsive shopping [Recovered/Resolved]
  - Arthralgia [Unknown]
  - Gambling disorder [Recovered/Resolved]
  - Product use in unapproved indication [Unknown]
  - Hospitalisation [Unknown]
  - Nephrolithiasis [Unknown]
  - Weight increased [Recovered/Resolved]
  - Eating disorder [Recovered/Resolved]

NARRATIVE: CASE EVENT DATE: 2012
